FAERS Safety Report 8874646 (Version 1)
Quarter: 2012Q4

REPORT INFORMATION
  Report Type: 
  Country: NG (occurrence: NG)
  Receive Date: 20121023
  Receipt Date: 20121023
  Transmission Date: 20130627
  Serious: Yes (Death, Hospitalization)
  Sender: FDA-Public Use
  Company Number: NG-ROCHE-1146418

PATIENT
  Age: 34 Year
  Sex: Female

DRUGS (3)
  1. ROCEPHIN [Suspect]
     Indication: MENINGITIS
     Route: 042
     Dates: start: 20121011, end: 20121015
  2. DEXAMETHASONE [Suspect]
     Indication: MENINGITIS
     Route: 042
     Dates: start: 20121011, end: 20121013
  3. ACICLOVIR [Concomitant]
     Indication: MENINGITIS
     Route: 042
     Dates: start: 20121011

REACTIONS (2)
  - Intracranial pressure increased [Fatal]
  - No therapeutic response [Unknown]
